FAERS Safety Report 8472356-4 (Version None)
Quarter: 2012Q2

REPORT INFORMATION
  Report Type: 
  Country: None (occurrence: None)
  Receive Date: 20120627
  Receipt Date: 20110610
  Transmission Date: 20120825
  Serious: No
  Sender: FDA-Public Use
  Company Number: US-AMGEN-USASP2011030373

PATIENT
  Age: 55 Year
  Sex: Female
  Weight: 59.864 kg

DRUGS (2)
  1. PROCRIT [Suspect]
     Indication: ANAEMIA OF MALIGNANT DISEASE
     Dosage: UNK
     Route: 058
     Dates: start: 20110609
  2. ANTINEOPLASTIC AGENTS [Concomitant]
     Dosage: UNK

REACTIONS (5)
  - PYREXIA [None]
  - NAUSEA [None]
  - ENERGY INCREASED [None]
  - HEADACHE [None]
  - FLUSHING [None]
